FAERS Safety Report 12864994 (Version 1)
Quarter: 2016Q4

REPORT INFORMATION
  Report Type: Report from Study
  Country: IT (occurrence: IT)
  Receive Date: 20161020
  Receipt Date: 20161020
  Transmission Date: 20170207
  Serious: Yes (Hospitalization)
  Sender: FDA-Public Use
  Company Number: IT-TEVA-697536ACC

PATIENT
  Age: 82 Year
  Sex: Male

DRUGS (5)
  1. ACTONEL - 35 MG COMPRESSE RIVESTITE CON FILM [Concomitant]
     Indication: OSTEOPOROSIS
     Dosage: 1 DF
     Route: 048
  2. ATENOLOL. [Suspect]
     Active Substance: ATENOLOL
     Indication: HYPERTENSION
     Dosage: 100 MILLIGRAM DAILY;
     Route: 048
     Dates: start: 20090101, end: 20160810
  3. PREVEX - 10 MG COMPRESSE A RILASCIO PROLUNGATO [Concomitant]
     Indication: HYPERTENSION
     Dosage: 10 MG
     Route: 048
  4. CARDIOASPIRIN - 100 MG COMPRESSE GASTRORESISTENTI [Concomitant]
     Active Substance: ASPIRIN
     Indication: PRODUCT USED FOR UNKNOWN INDICATION
     Dosage: 100 MG
     Route: 048
  5. DIBASE - 25.000 UI/2,5 ML SOLUZIONE ORALE [Concomitant]
     Active Substance: CHOLECALCIFEROL
     Indication: OSTEOPOROSIS
     Dosage: 1 DF
     Route: 048

REACTIONS (3)
  - Bradycardia [Recovered/Resolved]
  - Syncope [Recovered/Resolved]
  - Drop attacks [Recovered/Resolved]

NARRATIVE: CASE EVENT DATE: 20160810
